FAERS Safety Report 8606648-2 (Version None)
Quarter: 2012Q3

REPORT INFORMATION
  Report Type: 
  Country: None (occurrence: None)
  Receive Date: 20120820
  Receipt Date: 20120813
  Transmission Date: 20120928
  Serious: Yes (Hospitalization)
  Sender: FDA-Public Use
  Company Number: US-PFIZER INC-2012197505

PATIENT
  Age: 67 Year
  Sex: Female
  Weight: 69 kg

DRUGS (14)
  1. LIPITOR [Suspect]
     Indication: HYPERCHOLESTEROLAEMIA
     Dosage: UNK
  2. OXYCONTIN [Concomitant]
     Indication: BACK PAIN
     Dosage: UNK
  3. ACETYLSALICYLIC ACID [Concomitant]
  4. AMLODIPINE BESILATE [Concomitant]
     Indication: HYPERTENSION
     Dosage: UNK
  5. CITALOPRAM [Concomitant]
     Indication: DEPRESSION
     Dosage: UNK
  6. OMEPRAZOLE [Concomitant]
     Indication: GASTROOESOPHAGEAL REFLUX DISEASE
     Dosage: UNK
  7. CATAPRES [Concomitant]
     Indication: HYPERTENSION
     Dosage: UNK
  8. CODEINE SULFATE [Concomitant]
     Indication: BACK PAIN
     Dosage: UNK
  9. VITAMIN D [Concomitant]
     Indication: VITAMIN D DEFICIENCY
     Dosage: UNK
  10. FLEXERIL [Concomitant]
     Indication: BACK PAIN
     Dosage: UNK
  11. LASIX [Concomitant]
     Indication: HYPERTENSION
     Dosage: UNK
  12. LOPRESSOR [Concomitant]
  13. DIOVAN [Concomitant]
     Indication: HYPERTENSION
     Dosage: UNK
  14. METFORMIN [Concomitant]
     Dosage: UNK
     Dates: end: 20120530

REACTIONS (2)
  - RENAL FAILURE ACUTE [None]
  - HYPOGLYCAEMIA [None]
